FAERS Safety Report 7653330-4 (Version None)
Quarter: 2011Q3

REPORT INFORMATION
  Report Type: 
  Country: None (occurrence: None)
  Receive Date: 20110803
  Receipt Date: 20110727
  Transmission Date: 20111222
  Serious: Yes (Hospitalization, Other)
  Sender: FDA-Public Use
  Company Number: US-ALEXION PHARMACEUTICALS INC.-A201100931

PATIENT
  Sex: Female

DRUGS (27)
  1. FENTANYL [Concomitant]
  2. NYSTATIN [Concomitant]
  3. ARIXTRA [Concomitant]
  4. INSULIN [Concomitant]
  5. ZOFRAN [Concomitant]
  6. AMPICILLIN SODIUM [Concomitant]
  7. VANCOMYCIN [Concomitant]
  8. ALBUMIN (HUMAN) [Concomitant]
  9. MAGNESIUM SULFATE [Concomitant]
  10. ZOSYN [Concomitant]
  11. ACYCLOVIR [Concomitant]
  12. PROPOFOL [Concomitant]
  13. SOLIRIS [Suspect]
     Indication: PAROXYSMAL NOCTURNAL HAEMOGLOBINURIA
     Dosage: 900 MG, UNK
     Route: 042
  14. CIPROFLOXACIN HCL [Concomitant]
  15. MORPHINE [Concomitant]
  16. CALCIUM ACETATE [Concomitant]
  17. DILAUDID [Concomitant]
  18. VERSED [Concomitant]
  19. MYCOPHENOLATE MOFETIL [Concomitant]
  20. PREDNISONE [Concomitant]
  21. COMPAZINE [Concomitant]
  22. SIMETHICONE [Concomitant]
  23. LASIX [Concomitant]
  24. PROGRAF [Concomitant]
  25. BACTRIM [Concomitant]
  26. TYLENOL-500 [Concomitant]
  27. METOPROLOL TARTRATE [Concomitant]

REACTIONS (2)
  - POST PROCEDURAL HAEMORRHAGE [None]
  - HEPATIC FAILURE [None]
